FAERS Safety Report 20084961 (Version 2)
Quarter: 2021Q4

REPORT INFORMATION
  Report Type: Spontaneous
  Country: BE (occurrence: BE)
  Receive Date: 20211118
  Receipt Date: 20211207
  Transmission Date: 20220304
  Serious: Yes (Hospitalization, Other)
  Sender: FDA-Public Use
  Company Number: BE-NOVARTISPH-NVSC2021BE260787

PATIENT
  Age: 13 Year
  Sex: Male

DRUGS (1)
  1. ZOMETA [Suspect]
     Active Substance: ZOLEDRONIC ACID
     Indication: Hypercalcaemia
     Dosage: 2.5 MG
     Route: 042
     Dates: start: 20200605

REACTIONS (3)
  - Tubulointerstitial nephritis [Recovered/Resolved]
  - Pancytopenia [Recovered/Resolved]
  - Off label use [Unknown]
